FAERS Safety Report 20760662 (Version 3)
Quarter: 2022Q2

REPORT INFORMATION
  Report Type: Spontaneous
  Country: JP (occurrence: JP)
  Receive Date: 20220428
  Receipt Date: 20220629
  Transmission Date: 20220721
  Serious: Yes (Hospitalization, Other)
  Sender: FDA-Public Use
  Company Number: JP-ASTELLAS-2022JP005296

PATIENT
  Age: 31 Year
  Sex: Female
  Weight: 60 kg

DRUGS (16)
  1. PROGRAF [Suspect]
     Active Substance: TACROLIMUS
     Indication: Lupus nephritis
     Route: 048
     Dates: end: 20210424
  2. PROGRAF [Suspect]
     Active Substance: TACROLIMUS
     Indication: Systemic lupus erythematosus
  3. PREDNISOLONE [Concomitant]
     Active Substance: PREDNISOLONE
     Indication: Lupus nephritis
     Route: 048
     Dates: end: 20210429
  4. PREDNISOLONE [Concomitant]
     Active Substance: PREDNISOLONE
     Indication: Systemic lupus erythematosus
     Dosage: UNK UNK, UNKNOWN FREQ.
     Route: 048
  5. PREDNISOLONE [Concomitant]
     Active Substance: PREDNISOLONE
     Dosage: TAPERED, UNKNOWN FREQ.
     Route: 048
  6. ASPIRIN [Concomitant]
     Active Substance: ASPIRIN
     Indication: Lupus nephritis
     Dosage: UNK UNK, UNKNOWN FREQ.
     Route: 065
  7. ASPIRIN [Concomitant]
     Active Substance: ASPIRIN
     Indication: Systemic lupus erythematosus
     Dosage: 100 MG/DAY, UNKNOWN FREQ.
     Route: 065
  8. ASPIRIN [Concomitant]
     Active Substance: ASPIRIN
     Indication: Prophylaxis of abortion
     Route: 048
  9. HEPARIN CALCIUM [Concomitant]
     Active Substance: HEPARIN CALCIUM
     Indication: Thrombosis prophylaxis
     Dosage: 10000 U/DAY, TWICE DAILY
     Route: 058
     Dates: start: 20201113, end: 20210423
  10. ALDOMET [Concomitant]
     Active Substance: METHYLDOPA
     Indication: Hypertension
     Dosage: 1000 MG/DAY, THRICE DAILY
     Route: 048
     Dates: start: 20210422, end: 20210423
  11. ALDOMET [Concomitant]
     Active Substance: METHYLDOPA
     Dosage: 2000 MG/DAY, THRICE DAILY
     Route: 048
     Dates: start: 20210423, end: 20210425
  12. Rinderon [Concomitant]
     Indication: Maternal therapy to enhance foetal lung maturity
     Route: 030
     Dates: start: 20210423, end: 20210425
  13. HEPARIN SODIUM [Concomitant]
     Active Substance: HEPARIN SODIUM
     Indication: Thrombosis prophylaxis
     Dosage: 10000 U/DAY, CONTINUOUS INJECTION
     Route: 042
     Dates: start: 20210423, end: 20210429
  14. NICARDIPINE HYDROCHLORIDE [Concomitant]
     Active Substance: NICARDIPINE HYDROCHLORIDE
     Indication: Hypertension
     Dosage: UNK UNK, CONTINUOUS INJECTION
     Route: 042
     Dates: start: 20210426, end: 20210429
  15. HYDROCORTISONE [Concomitant]
     Active Substance: HYDROCORTISONE
     Indication: Product used for unknown indication
     Route: 065
  16. REBAMIPIDE [Concomitant]
     Active Substance: REBAMIPIDE
     Indication: Gastrooesophageal reflux disease
     Route: 048
     Dates: end: 20210429

REACTIONS (3)
  - Pre-eclampsia [Recovering/Resolving]
  - Premature delivery [Unknown]
  - Maternal exposure during pregnancy [Unknown]

NARRATIVE: CASE EVENT DATE: 20210422
